FAERS Safety Report 14822951 (Version 1)
Quarter: 2018Q2

REPORT INFORMATION
  Report Type: Spontaneous
  Country: US (occurrence: US)
  Receive Date: 20180417
  Receipt Date: 20180417
  Transmission Date: 20180711
  Serious: Yes (Other)
  Sender: FDA-Public Use
  Company Number: None

PATIENT
  Age: 28 Year
  Sex: Male
  Weight: 76.5 kg

DRUGS (2)
  1. IBUPROFEN. [Suspect]
     Active Substance: IBUPROFEN
  2. CIPROFLOXACIN. [Suspect]
     Active Substance: CIPROFLOXACIN
     Indication: URINARY TRACT INFECTION
     Dosage: ?          QUANTITY:20 TABLET(S);?
     Route: 048
     Dates: start: 20170123, end: 20170123

REACTIONS (24)
  - Anxiety [None]
  - Arthralgia [None]
  - Asthenia [None]
  - Fatigue [None]
  - Malaise [None]
  - Swelling [None]
  - Nasal dryness [None]
  - Dry mouth [None]
  - Body temperature decreased [None]
  - Fear [None]
  - Depression [None]
  - Faeces discoloured [None]
  - Heart rate increased [None]
  - Dyskinesia [None]
  - Dry eye [None]
  - Cognitive disorder [None]
  - Palpitations [None]
  - Muscle twitching [None]
  - Hyperacusis [None]
  - Tendonitis [None]
  - Suicidal ideation [None]
  - Toothache [None]
  - Night sweats [None]
  - Neuropathy peripheral [None]

NARRATIVE: CASE EVENT DATE: 20170123
